FAERS Safety Report 6703840-9 (Version None)
Quarter: 2010Q2

REPORT INFORMATION
  Report Type: 
  Country: None (occurrence: None)
  Receive Date: 20100430
  Receipt Date: 20100420
  Transmission Date: 20101027
  Serious: Yes (Other)
  Sender: FDA-Public Use
  Company Number: CA-PFIZER INC-2010013805

PATIENT
  Age: 45 Year
  Sex: Female
  Weight: 88 kg

DRUGS (6)
  1. DEPO-PROVERA [Suspect]
     Indication: CONTRACEPTION
     Dosage: UNK
     Route: 030
     Dates: start: 20090901, end: 20100202
  2. LOVAZA [Concomitant]
     Dosage: UNK
  3. GLUCOSAMINE [Concomitant]
     Dosage: UNK
  4. CHONDROITIN [Concomitant]
     Dosage: UNK
  5. ST. JOHN'S WORT [Concomitant]
     Dosage: UNK
  6. CALCIUM WITH VITAMIN D [Concomitant]
     Dosage: UNK

REACTIONS (9)
  - AGGRESSION [None]
  - ANXIETY [None]
  - BEREAVEMENT [None]
  - IMPATIENCE [None]
  - IRRITABILITY [None]
  - LOSS OF LIBIDO [None]
  - MENOMETRORRHAGIA [None]
  - NERVOUSNESS [None]
  - TREMOR [None]
